FAERS Safety Report 12658516 (Version 1)
Quarter: 2016Q3

REPORT INFORMATION
  Report Type: Report from Study
  Country: HK (occurrence: HK)
  Receive Date: 20160817
  Receipt Date: 20160817
  Transmission Date: 20161109
  Serious: Yes (Death, Other)
  Sender: FDA-Public Use
  Company Number: PHHY2016HK069348

PATIENT
  Age: 37 Year
  Sex: Male
  Weight: 88 kg

DRUGS (3)
  1. NELARABINE [Suspect]
     Active Substance: NELARABINE
     Indication: ACUTE LYMPHOCYTIC LEUKAEMIA RECURRENT
     Dosage: 1500 MG/M2, QD
     Route: 042
     Dates: start: 20160503
  2. NELARABINE [Suspect]
     Active Substance: NELARABINE
     Dosage: 1500 MG/M2, QD
     Route: 042
     Dates: start: 20160507
  3. NELARABINE [Suspect]
     Active Substance: NELARABINE
     Dosage: 1500 MG/M2, QD
     Route: 042
     Dates: start: 20160505

REACTIONS (3)
  - Neutropenia [Unknown]
  - Hyperbilirubinaemia [Fatal]
  - Liver function test abnormal [Unknown]

NARRATIVE: CASE EVENT DATE: 20160510
